FAERS Safety Report 11192914 (Version 2)
Quarter: 2015Q2

REPORT INFORMATION
  Report Type: Spontaneous
  Country: US (occurrence: None)
  Receive Date: 20150612
  Receipt Date: 20150617
  Transmission Date: 20150821
  Serious: Yes (Hospitalization, Other)
  Sender: FDA-Public Use
  Company Number: US-002035

PATIENT
  Age: 43 Year
  Sex: Female
  Weight: 72.58 kg

DRUGS (10)
  1. CALCIUM [Concomitant]
     Active Substance: CALCIUM
  2. POTASSIUM [Concomitant]
     Active Substance: POTASSIUM
  3. XANAX [Concomitant]
     Active Substance: ALPRAZOLAM
  4. HCTZ [Concomitant]
     Active Substance: HYDROCHLOROTHIAZIDE
  5. THYROID [Concomitant]
     Active Substance: LEVOTHYROXINE\LIOTHYRONINE
  6. ZOFRAN [Concomitant]
     Active Substance: ONDANSETRON HYDROCHLORIDE
  7. NATPARA (PARATHYROID HORMONE) [Suspect]
     Active Substance: PARATHYROID HORMONE
     Indication: HYPOPARATHYROIDISM
     Route: 058
     Dates: start: 20150510
  8. CALCITRIOL. [Concomitant]
     Active Substance: CALCITRIOL
  9. MAG OXIDE [Concomitant]
     Active Substance: MAGNESIUM OXIDE
  10. VITAMIN D3 [Concomitant]
     Active Substance: CHOLECALCIFEROL

REACTIONS (7)
  - Diarrhoea [None]
  - Gallbladder disorder [None]
  - Sluggishness [None]
  - Product quality issue [None]
  - Vomiting [None]
  - Fatigue [None]
  - Blood calcium decreased [None]

NARRATIVE: CASE EVENT DATE: 201505
